FAERS Safety Report 4975887-4 (Version None)
Quarter: 2006Q2

REPORT INFORMATION
  Report Type: 
  Country: None (occurrence: None)
  Receive Date: 20060412
  Receipt Date: 20060406
  Transmission Date: 20061013
  Serious: Yes (Death)
  Sender: FDA-Public Use
  Company Number: 805#9#2006-00029

PATIENT
  Age: 2 Day
  Sex: Male

DRUGS (1)
  1. ALPROSTADIL [Suspect]
     Indication: HEART DISEASE CONGENITAL
     Dosage: SEE IMAGE
     Route: 041
     Dates: start: 20040820, end: 20040824

REACTIONS (2)
  - DEATH NEONATAL [None]
  - INFANTILE APNOEIC ATTACK [None]
